FAERS Safety Report 8573626-1 (Version None)
Quarter: 2012Q3

REPORT INFORMATION
  Report Type: 
  Country: None (occurrence: None)
  Receive Date: 20120806
  Receipt Date: 20120731
  Transmission Date: 20120928
  Serious: Yes (Death)
  Sender: FDA-Public Use
  Company Number: US-ASTRAZENECA-2012SE54420

PATIENT
  Age: 60 Year
  Sex: Male

DRUGS (2)
  1. CAPRELSA [Suspect]
     Route: 048
  2. TRETINOIN [Concomitant]
     Indication: THYROID CANCER
     Dosage: HIGH DOSE

REACTIONS (2)
  - CEREBROVASCULAR ACCIDENT [None]
  - DISEASE PROGRESSION [None]
